FAERS Safety Report 11220764 (Version 1)
Quarter: 2015Q2

REPORT INFORMATION
  Report Type: Spontaneous
  Country: CN (occurrence: CN)
  Receive Date: 20150626
  Receipt Date: 20150626
  Transmission Date: 20150821
  Serious: Yes (Hospitalization)
  Sender: FDA-Public Use
  Company Number: CN-ASTRAZENECA-2015SE61117

PATIENT
  Age: 4 Year
  Sex: Female

DRUGS (1)
  1. PLENDIL [Suspect]
     Active Substance: FELODIPINE
     Dosage: 2 X 5 MG
     Route: 048
     Dates: start: 20150615

REACTIONS (6)
  - Merycism [Recovered/Resolved]
  - Vomiting [Recovered/Resolved]
  - Depressed mood [Unknown]
  - Intentional product misuse [Unknown]
  - Nausea [Unknown]
  - Fear [Unknown]
